FAERS Safety Report 6913474-9 (Version None)
Quarter: 2010Q3

REPORT INFORMATION
  Report Type: 
  Country: None (occurrence: None)
  Receive Date: 20100804
  Receipt Date: 20100804
  Transmission Date: 20110219
  Serious: Yes (Other)
  Sender: FDA-Public Use
  Company Number: None

PATIENT
  Age: 21 Year
  Sex: Female
  Weight: 44.4525 kg

DRUGS (1)
  1. CARBATROL [Suspect]
     Indication: CONVULSION
     Dates: start: 20061201

REACTIONS (3)
  - BLINDNESS [None]
  - HEARING IMPAIRED [None]
  - URTICARIA [None]
